FAERS Safety Report 7993951-2 (Version None)
Quarter: 2011Q4

REPORT INFORMATION
  Report Type: 
  Country: None (occurrence: None)
  Receive Date: 20111215
  Receipt Date: 20111202
  Transmission Date: 20120403
  Serious: Yes (Other)
  Sender: FDA-Public Use
  Company Number: 1000026182

PATIENT
  Age: 80 Year
  Sex: Male
  Weight: 85 kg

DRUGS (8)
  1. ROFLUMILAST (ROFLUMILAST) (TABLETS) [Suspect]
     Indication: CHRONIC OBSTRUCTIVE PULMONARY DISEASE
     Dosage: 500 MCG (500 MCG, 1 IN 1 D), ORAL
     Route: 048
     Dates: start: 20110112, end: 20110101
  2. TIOTROPIUM (TIOTROPIUM) (18 MICROGRAM, INHALANT) (TIOTROPIUM) [Concomitant]
  3. ROFLUMILAST (ROFLUMILAST) (TABLETS) [Suspect]
     Indication: CHRONIC OBSTRUCTIVE PULMONARY DISEASE
     Dosage: 500 MCG (500 MCG, 1 IN 1 D), ORAL
     Route: 048
     Dates: start: 20110701
  4. INFLUENZA VACCINE (INFLUENZA VACCINE) (INFLUENZA VACCINE) [Concomitant]
  5. SIMVASTATIN (SIMVASTATIN) (20 MILLIGRAM, TABLETS) (SIMVASTATIN) [Concomitant]
  6. ROFLUMILAST (ROFLUMILAST) (TABLETS) [Suspect]
     Indication: CHRONIC OBSTRUCTIVE PULMONARY DISEASE
     Dosage: 500 MCG (500 MCG, 1 IN 1 D), ORAL
     Route: 048
     Dates: start: 20110101, end: 20110501
  7. ALVESCO (CICLESONIDE) (160 MICROGRAM, INHALANT) (CICLESONIDE) [Concomitant]
  8. FORADIL (FORMOTEROL FUMARATE) (12 MICROGRAM, INHALANT) (FORMOTEROL FUM [Concomitant]

REACTIONS (6)
  - HERPES ZOSTER [None]
  - CONDITION AGGRAVATED [None]
  - TRANSIENT ISCHAEMIC ATTACK [None]
  - WEIGHT DECREASED [None]
  - NAUSEA [None]
  - DIARRHOEA [None]
